FAERS Safety Report 10328616 (Version 1)
Quarter: 2014Q3

REPORT INFORMATION
  Report Type: Spontaneous
  Country: IT (occurrence: IT)
  Receive Date: 20140721
  Receipt Date: 20140721
  Transmission Date: 20150326
  Serious: Yes (Hospitalization)
  Sender: FDA-Public Use
  Company Number: PHHY2014IT087001

PATIENT
  Age: 56 Year
  Sex: Male

DRUGS (3)
  1. CABERGOLINE. [Suspect]
     Active Substance: CABERGOLINE
     Dosage: 0.5 MG, QD
  2. BROMOCRIPTINE [Suspect]
     Active Substance: BROMOCRIPTINE
     Dosage: 5 MG, BID
  3. BROMOCRIPTINE [Suspect]
     Active Substance: BROMOCRIPTINE
     Dosage: 2.5 MG, TID

REACTIONS (19)
  - Arteriosclerosis [Recovering/Resolving]
  - Cardiac murmur [Recovering/Resolving]
  - Pulmonary embolism [Recovering/Resolving]
  - Ventricular hypokinesia [Recovering/Resolving]
  - Oedema peripheral [Recovering/Resolving]
  - Cardiomegaly [Recovering/Resolving]
  - Pulmonary arterial hypertension [Recovering/Resolving]
  - Pulmonary congestion [Recovering/Resolving]
  - Pleural effusion [Not Recovered/Not Resolved]
  - Adenoma benign [Recovering/Resolving]
  - Cardiac valve disease [Recovering/Resolving]
  - Orthopnoea [Recovering/Resolving]
  - Tricuspid valve incompetence [Recovering/Resolving]
  - Mitral valve incompetence [Recovering/Resolving]
  - Cardiac failure acute [Recovering/Resolving]
  - Dyspnoea [Recovering/Resolving]
  - Venous pressure jugular increased [Recovering/Resolving]
  - Respiratory acidosis [Recovering/Resolving]
  - Sinus tachycardia [Recovering/Resolving]
